FAERS Safety Report 5336966-5 (Version None)
Quarter: 2007Q2

REPORT INFORMATION
  Report Type: 
  Country: None (occurrence: None)
  Receive Date: 20070529
  Receipt Date: 20070516
  Transmission Date: 20071010
  Serious: Yes (Other)
  Sender: FDA-Public Use
  Company Number: US-ROCHE-476408

PATIENT
  Age: 77 Year
  Sex: Female

DRUGS (3)
  1. BONIVA [Suspect]
     Indication: DRUG USE FOR UNKNOWN INDICATION
     Route: 042
     Dates: start: 20061128
  2. UNSPECIFIED DRUG [Concomitant]
     Dosage: DRUG REPORTED AS UNKNOWN THYROID MEDICATION.
  3. STEROID NOS [Concomitant]

REACTIONS (33)
  - ABDOMINAL DISCOMFORT [None]
  - BACK PAIN [None]
  - BRONCHITIS [None]
  - CARDIAC ARREST [None]
  - CARDIAC FLUTTER [None]
  - CHEST PAIN [None]
  - DIZZINESS [None]
  - DYSPEPSIA [None]
  - DYSPNOEA [None]
  - ERUCTATION [None]
  - ERYTHEMA [None]
  - EXTRASYSTOLES [None]
  - FALL [None]
  - FINGER DEFORMITY [None]
  - HEART RATE DECREASED [None]
  - HEART RATE IRREGULAR [None]
  - HYPOAESTHESIA [None]
  - INJECTION SITE ERYTHEMA [None]
  - INSOMNIA [None]
  - JOINT RANGE OF MOTION DECREASED [None]
  - MEMORY IMPAIRMENT [None]
  - MUSCULAR WEAKNESS [None]
  - OEDEMA PERIPHERAL [None]
  - ORAL MUCOSAL BLISTERING [None]
  - ORAL PAIN [None]
  - PALPITATIONS [None]
  - PERIPHERAL COLDNESS [None]
  - RASH MACULAR [None]
  - RENAL PAIN [None]
  - SENSATION OF HEAVINESS [None]
  - THYROID DISORDER [None]
  - TONGUE BLISTERING [None]
  - WHEEZING [None]
